FAERS Safety Report 7741906-5 (Version None)
Quarter: 2011Q3

REPORT INFORMATION
  Report Type: 
  Country: None (occurrence: None)
  Receive Date: 20110912
  Receipt Date: 20110830
  Transmission Date: 20111222
  Serious: Yes (Death, Hospitalization, Other)
  Sender: FDA-Public Use
  Company Number: JP-AMGEN-JPNSP2011045399

PATIENT
  Age: 72 Year
  Sex: Male
  Weight: 63 kg

DRUGS (13)
  1. ENBREL [Suspect]
     Dosage: 25 MG, WEEKLY
     Route: 058
     Dates: start: 20091204, end: 20100331
  2. ISONIAZID [Concomitant]
     Dosage: UNK
     Route: 048
  3. FOSAMAX [Concomitant]
     Dosage: UNK
     Route: 048
  4. TAMSULOSIN HCL [Concomitant]
     Dosage: UNK
     Route: 048
  5. GASTER                             /00661201/ [Concomitant]
     Dosage: UNK
     Route: 048
  6. PYDOXAL [Concomitant]
     Dosage: UNK
     Route: 048
  7. ENBREL [Suspect]
     Dosage: 25 MG, WEEKLY
     Route: 058
     Dates: start: 20090814, end: 20091115
  8. ALFAROL [Concomitant]
     Dosage: UNK
     Route: 048
  9. URSO                               /00465701/ [Concomitant]
     Dosage: UNK
     Route: 048
  10. PREDNISOLONE [Concomitant]
     Dosage: UNK
     Route: 048
  11. PRORENAL [Concomitant]
     Dosage: UNK
     Route: 048
  12. ENBREL [Suspect]
     Indication: RHEUMATOID ARTHRITIS
     Dosage: 25 MG, WEEKLY
     Route: 058
     Dates: start: 20090731, end: 20090813
  13. RIMATIL [Concomitant]
     Dosage: UNK
     Route: 048

REACTIONS (2)
  - VOLVULUS [None]
  - INTERSTITIAL LUNG DISEASE [None]
